FAERS Safety Report 24708146 (Version 1)
Quarter: 2024Q4

REPORT INFORMATION
  Report Type: Spontaneous
  Country: GB (occurrence: GB)
  Receive Date: 20241207
  Receipt Date: 20241207
  Transmission Date: 20250115
  Serious: Yes (Other)
  Sender: AUROBINDO
  Company Number: GB-MHRA-MED-202411242218428250-PZFHD

PATIENT
  Age: 42 Year
  Sex: Female

DRUGS (2)
  1. MIRTAZAPINE [Suspect]
     Active Substance: MIRTAZAPINE
     Indication: Adverse drug reaction
     Dosage: 15 MILLIGRAM, ONCE A DAY
     Route: 065
  2. ESTRADIOL [Concomitant]
     Active Substance: ESTRADIOL
     Indication: Menopause
     Dosage: UNK
     Route: 065

REACTIONS (1)
  - Menstruation delayed [Not Recovered/Not Resolved]
